FAERS Safety Report 4877699-9 (Version None)
Quarter: 2006Q1

REPORT INFORMATION
  Report Type: 
  Country: None (occurrence: None)
  Receive Date: 20060109
  Receipt Date: 20051230
  Transmission Date: 20060701
  Serious: Yes (Other)
  Sender: FDA-Public Use
  Company Number: 2006001342

PATIENT
  Age: 18 Year
  Sex: Female
  Weight: 52.1637 kg

DRUGS (6)
  1. SUDAFED PE (PHENYLEPHRINE) [Suspect]
     Indication: NASOPHARYNGITIS
     Dosage: 4-5 TABLETS 2 TO 3 TIMES DAILY ORAL
     Route: 048
     Dates: start: 20051210, end: 20051213
  2. SUDAFED (PSEUDOEPHEDRINE) [Suspect]
     Indication: NASOPHARYNGITIS
     Dosage: 1 TABLET DAILY, ORAL
     Route: 048
     Dates: start: 20051210, end: 20051213
  3. IBUPROFEN [Suspect]
     Indication: NASOPHARYNGITIS
     Dates: start: 20051201, end: 20051201
  4. DRUG, UNSPECIFIED (DRUG, UNSPECIFIED) [Suspect]
     Indication: NASOPHARYNGITIS
     Dates: start: 20051201, end: 20051201
  5. DEXTROMETHORPHAN/PARACETAMOL/PSEUDOEPHEDRINE (DEXTROMETHORPHAN, PARACE [Suspect]
     Indication: NASOPHARYNGITIS
     Dates: start: 20051201, end: 20051201
  6. ACETAMINOPHEN [Suspect]
     Indication: NASOPHARYNGITIS
     Dates: start: 20051201, end: 20051201

REACTIONS (7)
  - ANOREXIA [None]
  - CHEST PAIN [None]
  - DISORIENTATION [None]
  - DRUG ADMINISTRATION ERROR [None]
  - DYSPNOEA [None]
  - NAUSEA [None]
  - SOMNOLENCE [None]
